FAERS Safety Report 9547078 (Version 2)
Quarter: 2014Q1

REPORT INFORMATION
  Report Type: Spontaneous
  Country: US (occurrence: None)
  Receive Date: 20130606
  Receipt Date: 20130906
  Transmission Date: 20141002
  Serious: No
  Sender: FDA-Public Use
  Company Number: 163-POMAL-13044990

PATIENT
  Age: 50 Year
  Sex: Male

DRUGS (3)
  1. POMALYST (POMALIDOMIDE) (2 MILLIGRAM, CAPSULES) [Suspect]
     Indication: PLASMA CELL MYELOMA
     Dosage: 2 MG, 21 IN 28D
     Route: 048
     Dates: start: 20130401
  2. DEXAMETHASONE (DEXAMETHASONE) [Concomitant]
  3. RANITIDINE (RANITIDINE) [Concomitant]

REACTIONS (3)
  - Rash pruritic [None]
  - Swelling [None]
  - Blood pressure decreased [None]
